FAERS Safety Report 10185551 (Version 2)
Quarter: 2014Q2

REPORT INFORMATION
  Report Type: Spontaneous
  Country: JP (occurrence: JP)
  Receive Date: 20140521
  Receipt Date: 20140611
  Transmission Date: 20141212
  Serious: Yes (Other)
  Sender: FDA-Public Use
  Company Number: JP-PFIZER INC-2014132381

PATIENT
  Age: 8 Decade
  Sex: Male

DRUGS (2)
  1. LYRICA [Suspect]
     Dosage: 150 MG, DAILY
     Route: 048
  2. LOXONIN [Concomitant]
     Dosage: 180 MG, DAILY
     Route: 048

REACTIONS (2)
  - Urinary retention [Recovered/Resolved]
  - Oedema peripheral [Unknown]
